FAERS Safety Report 15017601 (Version 1)
Quarter: 2018Q2

REPORT INFORMATION
  Report Type: Spontaneous
  Country: US (occurrence: US)
  Receive Date: 20180531
  Receipt Date: 20180531
  Transmission Date: 20180711
  Serious: Yes (Disabling)
  Sender: FDA-Public Use
  Company Number: None

PATIENT
  Age: 41 Year
  Sex: Female
  Weight: 62.1 kg

DRUGS (2)
  1. LEVOFLOXACIN. [Suspect]
     Active Substance: LEVOFLOXACIN
     Indication: SINUSITIS
     Dosage: ?          QUANTITY:1 TABLET(S);?
     Route: 048
     Dates: start: 20180320, end: 20180324
  2. MIRENA [Concomitant]
     Active Substance: LEVONORGESTREL

REACTIONS (15)
  - Gait disturbance [None]
  - Joint swelling [None]
  - Headache [None]
  - Dysarthria [None]
  - Vomiting [None]
  - Pain in extremity [None]
  - Muscular weakness [None]
  - Dizziness [None]
  - Paraesthesia [None]
  - Muscle spasms [None]
  - Feeling abnormal [None]
  - Arthralgia [None]
  - Neuropathy peripheral [None]
  - Anxiety [None]
  - Nausea [None]

NARRATIVE: CASE EVENT DATE: 20180320
